FAERS Safety Report 10140609 (Version 2)
Quarter: 2014Q2

REPORT INFORMATION
  Report Type: Report from Study
  Country: US (occurrence: US)
  Receive Date: 20140429
  Receipt Date: 20140506
  Transmission Date: 20141212
  Serious: Yes (Other)
  Sender: FDA-Public Use
  Company Number: US-BAXTER-2014BAX020863

PATIENT
  Age: 60 Year
  Sex: Male

DRUGS (1)
  1. GAMMAGARD S/D [Suspect]
     Indication: HYPOGAMMAGLOBULINAEMIA
     Route: 042
     Dates: start: 1994

REACTIONS (4)
  - Phlebitis [Recovered/Resolved]
  - Device occlusion [Recovered/Resolved]
  - Device related infection [Recovered/Resolved]
  - Weight decreased [Recovered/Resolved]
